FAERS Safety Report 23032002 (Version 21)
Quarter: 2025Q2

REPORT INFORMATION
  Report Type: Spontaneous
  Country: JP (occurrence: JP)
  Receive Date: 20231005
  Receipt Date: 20250528
  Transmission Date: 20250716
  Serious: Yes (Death, Hospitalization, Other)
  Sender: BRISTOL-MYERS SQUIBB COMPANY
  Company Number: JP-BRISTOL-MYERS SQUIBB COMPANY-2023-140382

PATIENT
  Age: 68 Year
  Sex: Male
  Weight: 63 kg

DRUGS (7)
  1. YERVOY [Suspect]
     Active Substance: IPILIMUMAB
     Indication: Non-small cell lung cancer recurrent
     Route: 041
     Dates: start: 20220705, end: 20220816
  2. OPDIVO [Suspect]
     Active Substance: NIVOLUMAB
     Indication: Non-small cell lung cancer recurrent
     Route: 041
     Dates: start: 20220705, end: 20220816
  3. CARBOPLATIN [Suspect]
     Active Substance: CARBOPLATIN
     Indication: Non-small cell lung cancer recurrent
     Dates: start: 20220705
  4. PEMETREXED [Suspect]
     Active Substance: PEMETREXED
     Indication: Non-small cell lung cancer recurrent
     Dates: start: 20220705
  5. UNITALC (STERILE TALC) [Suspect]
     Active Substance: TALC
     Indication: Pleural effusion
     Dates: start: 20220808
  6. PIPERACILLIN AND TAZOBACTAM [Concomitant]
     Active Substance: PIPERACILLIN SODIUM\TAZOBACTAM SODIUM
     Indication: Product used for unknown indication
  7. TOCILIZUMAB [Concomitant]
     Active Substance: TOCILIZUMAB
     Indication: Product used for unknown indication

REACTIONS (17)
  - Cytokine release syndrome [Fatal]
  - Pneumocystis jirovecii pneumonia [Fatal]
  - Kidney enlargement [Unknown]
  - Shock [Unknown]
  - Altered state of consciousness [Unknown]
  - Nephritis [Unknown]
  - Neutropenia [Unknown]
  - Renal impairment [Unknown]
  - Myelosuppression [Unknown]
  - Lymphocyte count increased [Recovered/Resolved]
  - Pleural effusion [Recovered/Resolved]
  - Condition aggravated [Recovered/Resolved]
  - Pyrexia [Unknown]
  - Hepatic function abnormal [Unknown]
  - Non-small cell lung cancer [Unknown]
  - White blood cell count decreased [Unknown]
  - Platelet count decreased [Unknown]

NARRATIVE: CASE EVENT DATE: 20220811
